FAERS Safety Report 15964197 (Version 1)
Quarter: 2019Q1

REPORT INFORMATION
  Report Type: Report from Study
  Country: None (occurrence: US)
  Receive Date: 20190214
  Receipt Date: 20190214
  Transmission Date: 20190417
  Serious: Yes (Hospitalization, Other)
  Sender: FDA-Public Use
  Company Number: US-ABBVIE-19K-163-2610005-00

PATIENT
  Age: 55 Year
  Sex: Male
  Weight: 64.47 kg

DRUGS (9)
  1. LIPITOR [Concomitant]
     Active Substance: ATORVASTATIN CALCIUM
     Indication: BLOOD CHOLESTEROL INCREASED
  2. NORVASC [Concomitant]
     Active Substance: AMLODIPINE BESYLATE
     Indication: HYPERTENSION
  3. HUMIRA [Suspect]
     Active Substance: ADALIMUMAB
     Indication: CROHN^S DISEASE
     Route: 058
     Dates: start: 2012
  4. KLONOPIN [Concomitant]
     Active Substance: CLONAZEPAM
     Indication: ANXIETY
  5. PREDNISONE. [Concomitant]
     Active Substance: PREDNISONE
     Indication: CROHN^S DISEASE
  6. FLUCONAZOLE. [Concomitant]
     Active Substance: FLUCONAZOLE
     Indication: PANCREATITIS
  7. GLYCOPYRROLATE. [Concomitant]
     Active Substance: GLYCOPYRROLATE
     Indication: CROHN^S DISEASE
  8. COLESTIPOL [Concomitant]
     Active Substance: COLESTIPOL
     Indication: CROHN^S DISEASE
  9. ZYRTEC [Concomitant]
     Active Substance: CETIRIZINE HYDROCHLORIDE
     Indication: HYPERSENSITIVITY

REACTIONS (21)
  - Fall [Unknown]
  - Pancreatolithiasis [Recovered/Resolved]
  - Fall [Recovered/Resolved with Sequelae]
  - Fungal pharyngitis [Unknown]
  - Pancreatitis [Recovered/Resolved]
  - Abdominal pain [Recovered/Resolved]
  - Weight decreased [Not Recovered/Not Resolved]
  - Intellectual disability [Not Recovered/Not Resolved]
  - Head injury [Recovered/Resolved]
  - Clavicle fracture [Recovered/Resolved]
  - Cerebral haemorrhage [Recovered/Resolved]
  - Blood potassium decreased [Recovered/Resolved]
  - Loss of consciousness [Recovered/Resolved]
  - Pancreatic failure [Not Recovered/Not Resolved]
  - Amnesia [Not Recovered/Not Resolved]
  - Oesophageal pain [Recovered/Resolved]
  - Fall [Recovered/Resolved]
  - Fungal oesophagitis [Recovered/Resolved]
  - Chest pain [Recovered/Resolved]
  - Balance disorder [Not Recovered/Not Resolved]
  - Procedural pain [Recovered/Resolved]

NARRATIVE: CASE EVENT DATE: 2018
